FAERS Safety Report 25715345 (Version 1)
Quarter: 2025Q3

REPORT INFORMATION
  Report Type: Spontaneous
  Country: EU (occurrence: EU)
  Receive Date: 20250822
  Receipt Date: 20250822
  Transmission Date: 20251021
  Serious: Yes (Other)
  Sender: CELLTRION
  Company Number: EU-PFIZER INC-202500130656

PATIENT

DRUGS (8)
  1. RITUXIMAB [Suspect]
     Active Substance: RITUXIMAB
     Indication: Mantle cell lymphoma
  2. RITUXIMAB [Suspect]
     Active Substance: RITUXIMAB
     Indication: Bone marrow conditioning regimen
     Dates: start: 20240926
  3. RITUXIMAB [Suspect]
     Active Substance: RITUXIMAB
     Dates: start: 2024
  4. RITUXIMAB [Suspect]
     Active Substance: RITUXIMAB
     Dates: start: 2024
  5. CYTARABINE [Suspect]
     Active Substance: CYTARABINE
     Indication: Mantle cell lymphoma
  6. METHOTREXATE [Suspect]
     Active Substance: METHOTREXATE
     Indication: Mantle cell lymphoma
  7. THIOTEPA [Suspect]
     Active Substance: THIOTEPA
     Indication: Mantle cell lymphoma
  8. IBRUTINIB [Suspect]
     Active Substance: IBRUTINIB
     Indication: Mantle cell lymphoma

REACTIONS (6)
  - Enterocolitis [Recovering/Resolving]
  - Subileus [Recovering/Resolving]
  - Cytopenia [Recovering/Resolving]
  - Febrile neutropenia [Unknown]
  - Stomatitis [Unknown]
  - Intentional product use issue [Unknown]
